FAERS Safety Report 12242330 (Version 1)
Quarter: 2016Q2

REPORT INFORMATION
  Report Type: Report from Study
  Country: US (occurrence: US)
  Receive Date: 20160406
  Receipt Date: 20160406
  Transmission Date: 20160815
  Serious: No
  Sender: FDA-Public Use
  Company Number: GXBR2016US001071

PATIENT
  Sex: Female

DRUGS (4)
  1. CORTISOL [Concomitant]
     Active Substance: HYDROCORTISONE
     Dosage: UNK DF, UNK
  2. LEVOTHYROXINE. [Concomitant]
     Active Substance: LEVOTHYROXINE
     Indication: HYPOTHYROIDISM
     Dosage: UNK DF, UNK
  3. OMNITROPE [Suspect]
     Active Substance: SOMATROPIN
     Indication: HYPOPITUITARISM
     Dosage: 0.5 MG, QD
     Route: 065
     Dates: start: 20160303
  4. SOLU-CORTEF [Concomitant]
     Active Substance: HYDROCORTISONE SODIUM SUCCINATE
     Dosage: UNK DF, UNK

REACTIONS (2)
  - Injection site bruising [Not Recovered/Not Resolved]
  - Fear of injection [Unknown]
